FAERS Safety Report 6968882-7 (Version None)
Quarter: 2010Q3

REPORT INFORMATION
  Report Type: 
  Country: None (occurrence: None)
  Receive Date: 20100907
  Receipt Date: 20100824
  Transmission Date: 20110219
  Serious: Yes (Other)
  Sender: FDA-Public Use
  Company Number: US-PFIZER INC-2010086109

PATIENT
  Sex: Male
  Weight: 86.168 kg

DRUGS (8)
  1. CHANTIX [Suspect]
     Indication: SMOKING CESSATION THERAPY
     Dosage: 0.5 MG, 1X/DAY
     Route: 048
     Dates: start: 20100601, end: 20100601
  2. CHANTIX [Suspect]
     Dosage: 1 MG, 2X/DAY
     Route: 048
     Dates: start: 20100601, end: 20100101
  3. CHANTIX [Suspect]
     Dosage: 1 MG, 2X/DAY
     Route: 048
     Dates: start: 20100601, end: 20100628
  4. ALLOPURINOL [Concomitant]
     Dosage: 100 MG, 3X/DAY
     Route: 048
  5. LISINOPRIL [Concomitant]
     Indication: HYPERTENSION
     Dosage: 40 MG, 1X/DAY
     Route: 048
  6. LISINOPRIL [Concomitant]
     Dosage: UNK
  7. FLEXERIL [Concomitant]
     Dosage: 10 MG, 3X/DAY AS NEEDED
  8. HYDROCHLOROTHIAZIDE [Concomitant]
     Dosage: 25 MG, 1X/DAY

REACTIONS (9)
  - ABNORMAL DREAMS [None]
  - BLOOD PRESSURE INCREASED [None]
  - CONTUSION [None]
  - FALL [None]
  - FOOT FRACTURE [None]
  - PAIN [None]
  - SKELETAL INJURY [None]
  - SOMNAMBULISM [None]
  - SWELLING [None]
